FAERS Safety Report 18701017 (Version 1)
Quarter: 2021Q1

REPORT INFORMATION
  Report Type: Spontaneous
  Country: US (occurrence: US)
  Receive Date: 20210105
  Receipt Date: 20210105
  Transmission Date: 20210419
  Serious: Yes (Hospitalization, Other)
  Sender: FDA-Public Use
  Company Number: US-MACLEODS PHARMACEUTICALS US LTD-MAC2020029666

PATIENT

DRUGS (1)
  1. TRIAMCINOLONE [Suspect]
     Active Substance: TRIAMCINOLONE
     Indication: PYLORIC STENOSIS
     Dosage: 80 MG, 9 DOSAGE FORM, SINGLE, INJECTION
     Route: 026

REACTIONS (2)
  - Nausea [Unknown]
  - Pyloric abscess [Unknown]
